FAERS Safety Report 8017305-8 (Version None)
Quarter: 2012Q1

REPORT INFORMATION
  Report Type: 
  Country: None (occurrence: None)
  Receive Date: 20120102
  Receipt Date: 20111228
  Transmission Date: 20120608
  Serious: Yes (Hospitalization, Other)
  Sender: FDA-Public Use
  Company Number: PHEH2010US03416

PATIENT
  Sex: Female

DRUGS (30)
  1. DARVOCET-N 50 [Concomitant]
  2. ZOFRAN [Concomitant]
     Dosage: 10 MG, Q8H
     Route: 042
  3. BETADINE [Concomitant]
     Route: 061
  4. AMBIEN [Concomitant]
  5. CARVEDILOL [Concomitant]
  6. REGLAN [Concomitant]
     Dosage: 10 MG, Q6H PRN
     Route: 042
  7. DOXYCYCLINE [Concomitant]
  8. ACETAMINOPHEN [Concomitant]
     Dosage: 500 MG, BID
     Route: 048
  9. TAMOXIFEN CITRATE [Concomitant]
  10. ASPIRIN [Concomitant]
     Dosage: 81 MG, DAILY
     Route: 048
  11. TORADOL [Concomitant]
     Route: 042
  12. DILAUDID [Concomitant]
  13. LISINOPRIL [Concomitant]
     Route: 048
  14. BENADRYL [Concomitant]
     Dosage: 25 MG, Q4H
     Route: 048
  15. CEFTAZIDIME [Concomitant]
     Dosage: 2 G, Q12H
  16. PHENERGAN [Concomitant]
     Dosage: 25 MG, Q6H
  17. NARCAN [Concomitant]
  18. LASIX [Concomitant]
     Dosage: 20 MG, QW3
  19. DITROPAN                                /USA/ [Concomitant]
     Dosage: 5 MG, QD
  20. AREDIA [Suspect]
     Dates: start: 19980401
  21. CLINDAMYCIN [Concomitant]
  22. NEUTRA-PHOS [Concomitant]
  23. COREG [Concomitant]
     Dosage: 3.125 MG, BID
  24. PROVIGIL [Concomitant]
     Dosage: 200 MG, QD
  25. RAZADYNE [Concomitant]
  26. ZOMETA [Suspect]
     Dates: end: 20060701
  27. FEMARA [Concomitant]
  28. DETROL [Concomitant]
     Route: 048
  29. VASOTEC [Concomitant]
     Dosage: 2.5 MG, DAILY
     Route: 048
  30. CHEMOTHERAPEUTICS [Concomitant]

REACTIONS (100)
  - HYPOAESTHESIA [None]
  - INTERVERTEBRAL DISC DEGENERATION [None]
  - NERVE COMPRESSION [None]
  - DERMAL CYST [None]
  - ATTENTION DEFICIT/HYPERACTIVITY DISORDER [None]
  - DEMENTIA [None]
  - LUNG NEOPLASM [None]
  - INCONTINENCE [None]
  - HYPERGLYCAEMIA [None]
  - ASTHENIA [None]
  - PULMONARY HYPERTENSION [None]
  - MYALGIA [None]
  - PAIN [None]
  - ANHEDONIA [None]
  - UTERINE PROLAPSE [None]
  - BURSITIS [None]
  - GAIT DISTURBANCE [None]
  - PELVIC PAIN [None]
  - CYSTOCELE [None]
  - CERVICITIS [None]
  - ARTERIOSCLEROSIS [None]
  - NOCTURIA [None]
  - MUSCLE SPASMS [None]
  - CONFUSIONAL STATE [None]
  - DEPRESSION [None]
  - DECREASED APPETITE [None]
  - VISION BLURRED [None]
  - ANXIETY [None]
  - METASTASES TO BONE [None]
  - VERTEBRAL FORAMINAL STENOSIS [None]
  - RENAL CYST [None]
  - CONGENITAL CYSTIC KIDNEY DISEASE [None]
  - EJECTION FRACTION DECREASED [None]
  - CARDIAC FAILURE CONGESTIVE [None]
  - NORMAL PRESSURE HYDROCEPHALUS [None]
  - RENAL CYST HAEMORRHAGE [None]
  - VAGINAL EROSION [None]
  - OSTEOPOROSIS [None]
  - RIGHT VENTRICULAR HYPERTROPHY [None]
  - MUSCULOSKELETAL PAIN [None]
  - OSTEOPENIA [None]
  - SYNOVIAL CYST [None]
  - EXOSTOSIS [None]
  - BLADDER PROLAPSE [None]
  - URINARY TRACT INFECTION [None]
  - RECTOCELE [None]
  - VENTRICULAR TACHYCARDIA [None]
  - MYOCARDIAL ISCHAEMIA [None]
  - CHRONIC OBSTRUCTIVE PULMONARY DISEASE [None]
  - ATRIAL FIBRILLATION [None]
  - CYST [None]
  - ARTHRITIS [None]
  - PATHOLOGICAL FRACTURE [None]
  - SCAPULA FRACTURE [None]
  - BONE LESION [None]
  - CARDIOMYOPATHY [None]
  - MITRAL VALVE INCOMPETENCE [None]
  - HEPATIC STEATOSIS [None]
  - LEFT VENTRICULAR DYSFUNCTION [None]
  - CEREBRAL ATROPHY [None]
  - ESCHERICHIA INFECTION [None]
  - OSTEONECROSIS OF JAW [None]
  - OSTEOARTHRITIS [None]
  - FATIGUE [None]
  - DIVERTICULUM INTESTINAL [None]
  - PULMONARY FIBROSIS [None]
  - TRANSIENT ISCHAEMIC ATTACK [None]
  - SINUSITIS [None]
  - ARTHRALGIA [None]
  - SCOLIOSIS [None]
  - PERIARTHRITIS [None]
  - VERTEBROBASILAR INSUFFICIENCY [None]
  - INJURY [None]
  - SPINAL COMPRESSION FRACTURE [None]
  - COUGH [None]
  - CARDIOMEGALY [None]
  - VULVOVAGINITIS [None]
  - OVARIAN CYST [None]
  - UTERINE LEIOMYOMA [None]
  - COR PULMONALE CHRONIC [None]
  - BUNDLE BRANCH BLOCK [None]
  - LEUKOCYTOSIS [None]
  - ATAXIA [None]
  - PSEUDOMONAS TEST POSITIVE [None]
  - POLYURIA [None]
  - ROTATOR CUFF SYNDROME [None]
  - ATELECTASIS [None]
  - OEDEMA PERIPHERAL [None]
  - EMPHYSEMA [None]
  - BRONCHIECTASIS [None]
  - CARDIAC PSEUDOANEURYSM [None]
  - PARAESTHESIA [None]
  - LABIA ENLARGED [None]
  - ANAEMIA [None]
  - DYSPNOEA [None]
  - AZOTAEMIA [None]
  - CEREBROVASCULAR ACCIDENT [None]
  - ARRHYTHMIA [None]
  - TRICUSPID VALVE INCOMPETENCE [None]
  - CATARACT [None]
